FAERS Safety Report 9071282 (Version 3)
Quarter: 2013Q2

REPORT INFORMATION
  Report Type: Report from Study
  Country: US (occurrence: US)
  Receive Date: 20130129
  Receipt Date: 20130618
  Transmission Date: 20140414
  Serious: Yes (Other)
  Sender: FDA-Public Use
  Company Number: US-ABBOTT-12P-163-0929963-00

PATIENT
  Age: 58 Year
  Sex: Female

DRUGS (10)
  1. HUMIRA 40 MG/0.8 ML PEN [Suspect]
     Indication: ANKYLOSING SPONDYLITIS
     Dates: end: 20120306
  2. ENALAPRIL HCTZ [Concomitant]
     Indication: HYPERTENSION
     Dosage: 10/25 MG
     Route: 048
  3. SERTRALINE [Concomitant]
     Indication: DEPRESSION
     Route: 048
  4. GABAPENTIN [Concomitant]
     Indication: NERVE COMPRESSION
     Route: 048
  5. LEVOTHYROXINE [Concomitant]
     Indication: HYPOTHYROIDISM
     Route: 048
  6. KLOR-CON [Concomitant]
     Indication: BLOOD POTASSIUM DECREASED
     Route: 048
  7. FLONASE [Concomitant]
     Indication: HYPERSENSITIVITY
     Dosage: 1 SPRAY IN EACH NOSTRIL DAILY
  8. IMITREX [Concomitant]
     Indication: MIGRAINE
     Route: 048
  9. GENERIC AMBIEN [Concomitant]
     Indication: INSOMNIA
     Dosage: AT BEDTIME
     Route: 048
  10. TRAMADOL [Concomitant]
     Indication: ARTHRALGIA
     Route: 048

REACTIONS (6)
  - Rotator cuff syndrome [Not Recovered/Not Resolved]
  - Spinal fusion surgery [Unknown]
  - Breast cancer [Unknown]
  - Intervertebral disc degeneration [Not Recovered/Not Resolved]
  - Neck pain [Not Recovered/Not Resolved]
  - Intraductal proliferative breast lesion [Recovered/Resolved]
